FAERS Safety Report 21918387 (Version 1)
Quarter: 2023Q1

REPORT INFORMATION
  Report Type: Spontaneous
  Country: US (occurrence: None)
  Receive Date: 20230127
  Receipt Date: 20230127
  Transmission Date: 20230417
  Serious: No
  Sender: FDA-Public Use
  Company Number: 2023A018549

PATIENT

DRUGS (1)
  1. PULMICORT FLEXHALER [Suspect]
     Active Substance: BUDESONIDE
     Indication: Asthma
     Dosage: 180 MCG, 120 DOSES, INHALER, 1 PUFF 2 TIMES
     Route: 055

REACTIONS (2)
  - Dyspnoea [Unknown]
  - Product dose omission issue [Unknown]
